FAERS Safety Report 5160705-4 (Version None)
Quarter: 2006Q4

REPORT INFORMATION
  Report Type: 
  Country: None (occurrence: None)
  Receive Date: 20060918
  Receipt Date: 20050729
  Transmission Date: 20070319
  Serious: Yes (Hospitalization)
  Sender: FDA-Public Use
  Company Number: US-JNJFOC-20050306348

PATIENT
  Age: 78 Year
  Sex: Male
  Weight: 63.2768 kg

DRUGS (2)
  1. TOPAMAX [Suspect]
     Indication: DRUG USE FOR UNKNOWN INDICATION
     Dosage: 25 MG, 2 IN 1 DAY
  2. NORVASC [Suspect]
     Indication: HYPERTENSION
     Dosage: 10 MG, IN 1 DAY, UNKNOWN

REACTIONS (3)
  - HYPERTENSION [None]
  - MUSCLE TWITCHING [None]
  - TREMOR [None]
